FAERS Safety Report 21659149 (Version 1)
Quarter: 2022Q4

REPORT INFORMATION
  Report Type: Spontaneous
  Country: US (occurrence: US)
  Receive Date: 20221129
  Receipt Date: 20221129
  Transmission Date: 20230113
  Serious: Yes (Death)
  Sender: FDA-Public Use
  Company Number: US-LUNDBECK-DKLU3055266

PATIENT
  Age: 11 Year
  Sex: Female

DRUGS (4)
  1. SABRIL [Suspect]
     Active Substance: VIGABATRIN
     Indication: Infantile spasms
     Route: 048
     Dates: start: 201907
  2. SABRIL [Suspect]
     Active Substance: VIGABATRIN
     Indication: General symptom
  3. BETHKIS [Concomitant]
     Active Substance: TOBRAMYCIN
     Indication: Lung disorder
     Route: 055
  4. BETHKIS [Concomitant]
     Active Substance: TOBRAMYCIN
     Indication: Bacterial infection

REACTIONS (1)
  - Death [Fatal]

NARRATIVE: CASE EVENT DATE: 20221121
